FAERS Safety Report 11504905 (Version 1)
Quarter: 2015Q3

REPORT INFORMATION
  Report Type: Spontaneous
  Country: US (occurrence: US)
  Receive Date: 20150915
  Receipt Date: 20150915
  Transmission Date: 20151125
  Serious: No
  Sender: FDA-Public Use
  Company Number: US-ROCHE-797735

PATIENT
  Sex: Female

DRUGS (3)
  1. COPEGUS [Suspect]
     Active Substance: RIBAVIRIN
     Dosage: DOSE: 400 MG/DAY
     Route: 048
  2. COPEGUS [Suspect]
     Active Substance: RIBAVIRIN
     Indication: CHRONIC HEPATITIS C
     Dosage: DOSE: 1000 MG/DAY DIVIDED DOSES ORALLY
     Route: 048
  3. PEGASYS [Suspect]
     Active Substance: PEGINTERFERON ALFA-2A
     Indication: CHRONIC HEPATITIS C
     Dosage: DOSE 180 MCG/WEEK, THERAPY FOR 24 WEEKS
     Route: 058

REACTIONS (4)
  - White blood cell count decreased [Unknown]
  - Weight decreased [Unknown]
  - Inguinal mass [Unknown]
  - Red blood cell count decreased [Unknown]
